FAERS Safety Report 5902394-4 (Version None)
Quarter: 2008Q3

REPORT INFORMATION
  Report Type: 
  Country: None (occurrence: None)
  Receive Date: 20080929
  Receipt Date: 20080925
  Transmission Date: 20090109
  Serious: Yes (Disabling, Other)
  Sender: FDA-Public Use
  Company Number: SE-ASTRAZENECA-2008AC02543

PATIENT
  Age: 32 Week
  Sex: Female
  Weight: 1.5 kg

DRUGS (10)
  1. ATACAND [Suspect]
     Dosage: GIVEN FROM POSTMENSTRUAL WEEK 27
     Route: 064
  2. SELOKEEN ZOC [Suspect]
     Route: 064
  3. TRIATEC [Suspect]
     Dosage: GIVEN BETWEEN POSTMENSTRUAL WEEKS 11-27
     Route: 064
  4. LASIX [Suspect]
     Route: 064
  5. KALITABS [Concomitant]
     Route: 064
  6. SPIRONOLACTONE [Concomitant]
     Route: 064
  7. FRAGMIN [Concomitant]
     Route: 064
  8. DIGOXIN [Concomitant]
     Route: 064
  9. PANTOPRAZOLE SODIUM [Concomitant]
     Route: 064
  10. CORTICOSTEROID [Concomitant]
     Route: 064

REACTIONS (4)
  - ANURIA [None]
  - HYPOTENSION [None]
  - OLIGOHYDRAMNIOS [None]
  - RETINOPATHY OF PREMATURITY [None]
